FAERS Safety Report 9390408 (Version 2)
Quarter: 2013Q3

REPORT INFORMATION
  Report Type: Spontaneous
  Country: FR (occurrence: FR)
  Receive Date: 20130709
  Receipt Date: 20130924
  Transmission Date: 20140515
  Serious: No
  Sender: FDA-Public Use
  Company Number: PHHY2013FR072000

PATIENT
  Sex: Female

DRUGS (2)
  1. NEORAL [Suspect]
     Indication: APLASIA PURE RED CELL
  2. NEORAL [Suspect]
     Indication: BONE MARROW FAILURE

REACTIONS (2)
  - Nausea [Recovered/Resolved]
  - Oedema [Recovered/Resolved]
